FAERS Safety Report 24882763 (Version 1)
Quarter: 2025Q1

REPORT INFORMATION
  Report Type: Spontaneous
  Country: US (occurrence: None)
  Receive Date: 20250123
  Receipt Date: 20250123
  Transmission Date: 20250409
  Serious: Yes (Hospitalization)
  Sender: FDA-CTU
  Company Number: None

PATIENT
  Age: 49 Year
  Sex: Female
  Weight: 76.7 kg

DRUGS (4)
  1. GLATOPA [Suspect]
     Active Substance: GLATIRAMER ACETATE
     Route: 058
     Dates: start: 20240517
  2. OCREVUS [Suspect]
     Active Substance: OCRELIZUMAB
     Route: 041
     Dates: start: 20240517, end: 20240723
  3. OCREVUS [Concomitant]
     Active Substance: OCRELIZUMAB
     Dates: start: 20230517, end: 20230730
  4. GLATOPA [Concomitant]
     Active Substance: GLATIRAMER ACETATE
     Dates: start: 20240501

REACTIONS (6)
  - Rash [None]
  - Pain [None]
  - Chills [None]
  - Malaise [None]
  - Genital rash [None]
  - Pharyngeal enanthema [None]

NARRATIVE: CASE EVENT DATE: 20241128
